FAERS Safety Report 5357245-6 (Version None)
Quarter: 2007Q2

REPORT INFORMATION
  Report Type: 
  Country: None (occurrence: None)
  Receive Date: 20070614
  Receipt Date: 20070604
  Transmission Date: 20071010
  Serious: Yes (Other)
  Sender: FDA-Public Use
  Company Number: US-ELI_LILLY_AND_COMPANY-US200706000531

PATIENT
  Sex: Female

DRUGS (2)
  1. EVISTA [Suspect]
     Indication: OSTEOPOROSIS
     Dosage: 60 MG, UNK
     Route: 048
  2. ROFECOXIB [Concomitant]
     Route: 048

REACTIONS (4)
  - FAT TISSUE INCREASED [None]
  - MASTECTOMY [None]
  - NON-CARDIAC CHEST PAIN [None]
  - PLEURISY [None]
